FAERS Safety Report 14012490 (Version 1)
Quarter: 2017Q3

REPORT INFORMATION
  Report Type: Spontaneous
  Country: US (occurrence: US)
  Receive Date: 20170926
  Receipt Date: 20170926
  Transmission Date: 20171128
  Serious: No
  Sender: FDA-Public Use
  Company Number: US-BIOMARINAP-US-2017-115493

PATIENT
  Age: 3 Month
  Sex: Female
  Weight: 4.4 kg

DRUGS (1)
  1. KUVAN [Suspect]
     Active Substance: SAPROPTERIN DIHYDROCHLORIDE
     Indication: PHENYLKETONURIA
     Dosage: 11.4 MG/KG, QD
     Route: 048
     Dates: start: 20170911

REACTIONS (2)
  - Rash [Unknown]
  - Vomiting [Unknown]

NARRATIVE: CASE EVENT DATE: 20170918
